FAERS Safety Report 17543518 (Version 3)
Quarter: 2020Q2

REPORT INFORMATION
  Report Type: Spontaneous
  Country: JP (occurrence: JP)
  Receive Date: 20200316
  Receipt Date: 20200414
  Transmission Date: 20200713
  Serious: Yes (Other)
  Sender: FDA-Public Use
  Company Number: JP-AMGEN-JPNSP2020040133

PATIENT
  Sex: Male

DRUGS (4)
  1. CALONAL [Concomitant]
     Active Substance: ACETAMINOPHEN
     Dosage: 200 MILLIGRAM, QD
  2. GASLON [Concomitant]
     Active Substance: IRSOGLADINE MALEATE
     Dosage: 2 MILLIGRAM, BID
  3. REPATHA [Suspect]
     Active Substance: EVOLOCUMAB
     Indication: HYPERCHOLESTEROLAEMIA
     Dosage: 140 MILLIGRAM
     Route: 058
     Dates: start: 20190611
  4. SAWACILLIN [Concomitant]
     Active Substance: AMOXICILLIN
     Dosage: 250 MILLIGRAM, TID

REACTIONS (1)
  - Leukoplakia oral [Unknown]

NARRATIVE: CASE EVENT DATE: 202002
